FAERS Safety Report 13089431 (Version 2)
Quarter: 2017Q1

REPORT INFORMATION
  Report Type: Spontaneous
  Country: US (occurrence: US)
  Receive Date: 20170105
  Receipt Date: 20170217
  Transmission Date: 20170428
  Serious: No
  Sender: FDA-Public Use
  Company Number: US-PFIZER INC-2016603582

PATIENT
  Age: 52 Year
  Sex: Female

DRUGS (4)
  1. ZOLOFT [Suspect]
     Active Substance: SERTRALINE HYDROCHLORIDE
     Indication: ANXIETY
     Dosage: 50 MG, UNK
     Dates: start: 2006
  2. WELLBUTRIN XL [Concomitant]
     Active Substance: BUPROPION HYDROCHLORIDE
     Dosage: 300 MG, 1X/DAY [TAKEN IN AM]
     Dates: start: 2007, end: 201605
  3. ZOLOFT [Suspect]
     Active Substance: SERTRALINE HYDROCHLORIDE
     Dosage: 100 MG, 1X/DAY (ONCE PER DAY IN MORNING)
     Dates: start: 2012, end: 20170101
  4. ZOLOFT [Suspect]
     Active Substance: SERTRALINE HYDROCHLORIDE
     Indication: DEPRESSION
     Dosage: 100 MG, UNK

REACTIONS (4)
  - Feeling abnormal [Recovered/Resolved]
  - Vertigo [Not Recovered/Not Resolved]
  - Vision blurred [Recovered/Resolved]
  - Nausea [Recovered/Resolved]
